FAERS Safety Report 16305734 (Version 3)
Quarter: 2022Q2

REPORT INFORMATION
  Report Type: Spontaneous
  Country: US (occurrence: None)
  Receive Date: 20190513
  Receipt Date: 20220419
  Transmission Date: 20220721
  Serious: Yes (Other)
  Sender: FDA-Public Use
  Company Number: 2019SE65253

PATIENT
  Age: 24659 Day
  Sex: Female
  Weight: 96.2 kg

DRUGS (36)
  1. NEXIUM [Suspect]
     Active Substance: ESOMEPRAZOLE MAGNESIUM
     Route: 048
  2. PRILOSEC [Suspect]
     Active Substance: OMEPRAZOLE MAGNESIUM
     Route: 048
  3. ZEGERID [Suspect]
     Active Substance: OMEPRAZOLE\SODIUM BICARBONATE
     Indication: Gastrooesophageal reflux disease
     Route: 065
     Dates: start: 200406, end: 2010
  4. ZEGERID [Suspect]
     Active Substance: OMEPRAZOLE\SODIUM BICARBONATE
     Indication: Gastrooesophageal reflux disease
     Dosage: GENERIC
     Route: 065
     Dates: start: 201606
  5. LYRICA [Concomitant]
     Active Substance: PREGABALIN
     Indication: Neuralgia
     Dates: start: 2010
  6. ZYRTEC [Concomitant]
     Active Substance: CETIRIZINE HYDROCHLORIDE
     Indication: Hypersensitivity
     Dates: start: 2010
  7. FUROSEMIDE [Concomitant]
     Active Substance: FUROSEMIDE
     Indication: Diuretic therapy
     Dates: start: 2012
  8. ROSUVASTATIN [Concomitant]
     Active Substance: ROSUVASTATIN
     Indication: Blood cholesterol increased
     Dates: start: 2010
  9. VITAMIN D [Concomitant]
     Active Substance: VITAMIN D NOS
     Indication: Supplementation therapy
     Dates: start: 2010
  10. ROPINIROLE [Concomitant]
     Active Substance: ROPINIROLE
     Indication: Restless legs syndrome
     Dates: start: 2016
  11. METFORMIN [Concomitant]
     Active Substance: METFORMIN HYDROCHLORIDE
     Indication: Diabetes mellitus
     Dates: start: 2010
  12. GEMFIBROZIL [Concomitant]
     Active Substance: GEMFIBROZIL
     Indication: Blood cholesterol increased
     Dates: start: 2010
  13. LOPERAMIDE [Concomitant]
     Active Substance: LOPERAMIDE
     Indication: Diarrhoea
     Dates: start: 2010
  14. POTASSIUM [Concomitant]
     Active Substance: POTASSIUM
     Indication: Supplementation therapy
     Dates: start: 201806
  15. MAGNESIUM [Concomitant]
     Active Substance: MAGNESIUM
     Indication: Supplementation therapy
     Dates: start: 201806
  16. ASPIRIN [Concomitant]
     Active Substance: ASPIRIN
     Indication: Analgesic therapy
     Dates: start: 2015
  17. ROLAIDS [Concomitant]
     Active Substance: CALCIUM CARBONATE\MAGNESIUM HYDROXIDE
     Dosage: OTC
     Dates: start: 2002
  18. MIRALAX [Concomitant]
     Active Substance: POLYETHYLENE GLYCOL 3350
  19. HYOSCYAMINE [Concomitant]
     Active Substance: HYOSCYAMINE
  20. DULERA [Concomitant]
     Active Substance: FORMOTEROL FUMARATE DIHYDRATE\MOMETASONE FUROATE
  21. GLUCAGON [Concomitant]
     Active Substance: GLUCAGON
  22. HUMALOG [Concomitant]
     Active Substance: INSULIN LISPRO
  23. TOUJEO [Concomitant]
     Active Substance: INSULIN GLARGINE
  24. LOSARTAN [Concomitant]
     Active Substance: LOSARTAN
  25. TOPAMAX [Concomitant]
     Active Substance: TOPIRAMATE
  26. ALBUTEROL SULFATE [Concomitant]
     Active Substance: ALBUTEROL SULFATE
  27. METOPROLOL [Concomitant]
     Active Substance: METOPROLOL
  28. BENTYL [Concomitant]
     Active Substance: DICYCLOMINE HYDROCHLORIDE
  29. HYOSCYAMINE [Concomitant]
     Active Substance: HYOSCYAMINE
  30. SPIRNOLACTONE [Concomitant]
  31. RIBOFLAVIN [Concomitant]
     Active Substance: RIBOFLAVIN
  32. MIDODRINE [Concomitant]
     Active Substance: MIDODRINE
  33. LOPID [Concomitant]
     Active Substance: GEMFIBROZIL
  34. TOVIAZ [Concomitant]
     Active Substance: FESOTERODINE FUMARATE
  35. LEVSIN [Concomitant]
     Active Substance: HYOSCYAMINE SULFATE
  36. FLEXERIL [Concomitant]
     Active Substance: CYCLOBENZAPRINE HYDROCHLORIDE

REACTIONS (2)
  - Chronic kidney disease [Not Recovered/Not Resolved]
  - Acute kidney injury [Unknown]

NARRATIVE: CASE EVENT DATE: 20130101
